FAERS Safety Report 21025350 (Version 1)
Quarter: 2022Q2

REPORT INFORMATION
  Report Type: Spontaneous
  Country: FR (occurrence: FR)
  Receive Date: 20220630
  Receipt Date: 20220630
  Transmission Date: 20220721
  Serious: Yes (Hospitalization)
  Sender: FDA-Public Use
  Company Number: FR-AFSSAPS-TO20222045

PATIENT
  Age: 90 Year
  Sex: Female
  Weight: 64 kg

DRUGS (2)
  1. VENLAFAXINE [Interacting]
     Active Substance: VENLAFAXINE HYDROCHLORIDE
     Indication: Anxiety
     Dosage: 37.5 MILLIGRAM, ONCE A DAY (LONG COURSE)
     Route: 048
  2. CALCIPARINE [Interacting]
     Active Substance: HEPARIN CALCIUM
     Indication: Deep vein thrombosis
     Dosage: 1.2 MILLILITER, ONCE A DAY
     Route: 058
     Dates: start: 20211021, end: 20211116

REACTIONS (1)
  - Haematoma muscle [Not Recovered/Not Resolved]

NARRATIVE: CASE EVENT DATE: 20211025
